FAERS Safety Report 21815871 (Version 1)
Quarter: 2023Q1

REPORT INFORMATION
  Report Type: Spontaneous
  Country: RU (occurrence: RU)
  Receive Date: 20230104
  Receipt Date: 20230104
  Transmission Date: 20230418
  Serious: Yes (Hospitalization)
  Sender: FDA-Public Use
  Company Number: RU-AstraZeneca-2022A417931

PATIENT
  Age: 62 Year
  Sex: Female
  Weight: 90 kg

DRUGS (4)
  1. METOPROLOL SUCCINATE [Suspect]
     Active Substance: METOPROLOL SUCCINATE
     Indication: Myocardial ischaemia
     Route: 048
  2. LOSARTAN [Concomitant]
     Active Substance: LOSARTAN
  3. ASPIRIN [Concomitant]
     Active Substance: ASPIRIN
  4. UNSPECIFIED INGREDIENT [Concomitant]
     Active Substance: UNSPECIFIED INGREDIENT

REACTIONS (2)
  - Atrioventricular block [Unknown]
  - Off label use [Unknown]
